FAERS Safety Report 5411311-5 (Version None)
Quarter: 2007Q3

REPORT INFORMATION
  Report Type: 
  Country: None (occurrence: None)
  Receive Date: 20070810
  Receipt Date: 20070806
  Transmission Date: 20080115
  Serious: Yes (Life-Threatening, Hospitalization)
  Sender: FDA-Public Use
  Company Number: DE-BAYER-200710820BVD

PATIENT
  Age: 69 Year
  Sex: Male

DRUGS (13)
  1. CIPROFLOXACIN HCL [Suspect]
     Indication: INFLAMMATION
     Dosage: UNIT DOSE: 500 MG
     Route: 048
     Dates: start: 20070522, end: 20070529
  2. APOMORPHINE HYDROCHLORIDE [Suspect]
     Indication: PARKINSONISM
     Route: 058
     Dates: start: 20070510, end: 20070608
  3. APOMORPHINE HYDROCHLORIDE [Suspect]
     Route: 058
     Dates: start: 20070608, end: 20070611
  4. UNACID [Suspect]
     Dosage: UNIT DOSE: 375 MG
     Route: 048
     Dates: start: 20070515, end: 20070521
  5. PK-MERZ [Concomitant]
     Dates: start: 20060101
  6. STALEVO 100 [Concomitant]
     Dates: start: 20060101
  7. RASAGILINE [Concomitant]
     Dates: start: 20060101
  8. TORSEMIDE [Concomitant]
  9. VITAMIN B-12 [Concomitant]
     Dates: start: 20070523
  10. DIGITOXIN TAB [Concomitant]
  11. LISINOPRIL [Concomitant]
  12. ROCEPHIN [Concomitant]
     Route: 065
     Dates: start: 20070530, end: 20070602
  13. ATACAND [Concomitant]

REACTIONS (4)
  - DIARRHOEA [None]
  - GASTROENTERITIS [None]
  - ROTAVIRUS TEST POSITIVE [None]
  - THROMBOCYTOPENIA [None]
